FAERS Safety Report 6277840-X (Version None)
Quarter: 2009Q3

REPORT INFORMATION
  Report Type: 
  Country: None (occurrence: None)
  Receive Date: 20090717
  Receipt Date: 20090717
  Transmission Date: 20100115
  Serious: Yes (Life-Threatening, Other)
  Sender: FDA-Public Use
  Company Number: None

PATIENT
  Age: 16 Year
  Sex: Female
  Weight: 44.4525 kg

DRUGS (1)
  1. ISOTRETINOIN [Suspect]
     Indication: ACNE
     Dosage: 1 CAPSULE DAY PO
     Route: 048
     Dates: start: 20081005, end: 20090704

REACTIONS (5)
  - ANXIETY [None]
  - DEPRESSION [None]
  - EATING DISORDER [None]
  - MENSTRUATION DELAYED [None]
  - WEIGHT DECREASED [None]
